FAERS Safety Report 9329726 (Version 1)
Quarter: 2013Q2

REPORT INFORMATION
  Report Type: Spontaneous
  Country: TW (occurrence: None)
  Receive Date: 20130531
  Receipt Date: 20130531
  Transmission Date: 20140414
  Serious: Yes (Hospitalization)
  Sender: FDA-Public Use
  Company Number: FK201301682

PATIENT
  Age: 32 Year
  Sex: Female

DRUGS (2)
  1. VALPROATE [Suspect]
     Indication: EPILEPSY
     Dosage: 400 MG, 1 IN 1 D
  2. LAMOTRIGINE [Suspect]
     Indication: EPILEPSY
     Dosage: TO INCREASE 20MG/WK

REACTIONS (2)
  - Drug reaction with eosinophilia and systemic symptoms [None]
  - Drug reaction with eosinophilia and systemic symptoms [None]
